FAERS Safety Report 11599273 (Version 1)
Quarter: 2015Q3

REPORT INFORMATION
  Report Type: Spontaneous
  Country: US (occurrence: US)
  Receive Date: 20150916
  Receipt Date: 20150916
  Transmission Date: 20151125
  Serious: No
  Sender: FDA-Public Use
  Company Number: US-ELI_LILLY_AND_COMPANY-US200712001155

PATIENT
  Age: 62 Year
  Sex: Female
  Weight: 42.63 kg

DRUGS (6)
  1. CALCIUM W/VITAMIN D NOS [Concomitant]
     Active Substance: CALCIUM\VITAMIN D
  2. GLUCOSAMINE [Concomitant]
     Active Substance: GLUCOSAMINE
  3. PREMARIN [Concomitant]
     Active Substance: ESTROGENS, CONJUGATED
  4. FISH OIL [Concomitant]
     Active Substance: FISH OIL
  5. FORTEO [Suspect]
     Active Substance: TERIPARATIDE
     Indication: OSTEOPOROSIS
     Dosage: 20 UG, DAILY (1/D)
     Dates: start: 20070317
  6. VITAMIN C [Concomitant]
     Active Substance: ASCORBIC ACID

REACTIONS (6)
  - Abscess oral [Not Recovered/Not Resolved]
  - Abscess oral [Not Recovered/Not Resolved]
  - Dental care [Recovered/Resolved]
  - Tooth disorder [Not Recovered/Not Resolved]
  - Endodontic procedure [Recovered/Resolved]
  - Endodontic procedure [Recovered/Resolved]

NARRATIVE: CASE EVENT DATE: 200703
